FAERS Safety Report 4627194-7 (Version None)
Quarter: 2005Q1

REPORT INFORMATION
  Report Type: 
  Country: None (occurrence: None)
  Receive Date: 20050330
  Receipt Date: 20041125
  Transmission Date: 20050727
  Serious: Yes (Death)
  Sender: FDA-Public Use
  Company Number: 9671

PATIENT
  Sex: Female

DRUGS (1)
  1. AMIODARONE [Suspect]

REACTIONS (2)
  - CONDITION AGGRAVATED [None]
  - IODINE ALLERGY [None]
